FAERS Safety Report 9086122 (Version 1)
Quarter: 2013Q1

REPORT INFORMATION
  Report Type: Report from Study
  Country: US (occurrence: US)
  Receive Date: 20130131
  Receipt Date: 20130131
  Transmission Date: 20140127
  Serious: No
  Sender: FDA-Public Use
  Company Number: US-ABBOTT-12P-163-0997460-00

PATIENT
  Age: 41 None
  Sex: Female

DRUGS (2)
  1. HUMIRA [Suspect]
     Indication: CROHN^S DISEASE
     Route: 058
     Dates: start: 201207, end: 20121024
  2. HUMIRA [Suspect]
     Route: 058
     Dates: start: 20121031

REACTIONS (2)
  - Clostridium difficile infection [Unknown]
  - Erythema [Unknown]
